FAERS Safety Report 15761639 (Version 1)
Quarter: 2018Q4

REPORT INFORMATION
  Report Type: Spontaneous
  Country: US (occurrence: US)
  Receive Date: 20181226
  Receipt Date: 20181226
  Transmission Date: 20190205
  Serious: No
  Sender: FDA-Public Use
  Company Number: None

PATIENT
  Age: 48 Year
  Sex: Female
  Weight: 120 kg

DRUGS (1)
  1. NAFCILLIN [Suspect]
     Active Substance: NAFCILLIN\NAFCILLIN SODIUM
     Indication: MASTOIDITIS
     Route: 041
     Dates: start: 20181213, end: 20181226

REACTIONS (1)
  - Rash generalised [None]

NARRATIVE: CASE EVENT DATE: 20181226
